FAERS Safety Report 15627488 (Version 2)
Quarter: 2020Q3

REPORT INFORMATION
  Report Type: Spontaneous
  Country: US (occurrence: US)
  Receive Date: 20181116
  Receipt Date: 20200915
  Transmission Date: 20201102
  Serious: Yes (Death, Hospitalization)
  Sender: FDA-Public Use
  Company Number: US-JNJFOC-20181118223

PATIENT
  Age: 71 Year
  Sex: Male

DRUGS (2)
  1. XARELTO [Suspect]
     Active Substance: RIVAROXABAN
     Indication: CEREBROVASCULAR ACCIDENT PROPHYLAXIS
     Route: 048
     Dates: start: 20140325, end: 20140424
  2. XARELTO [Suspect]
     Active Substance: RIVAROXABAN
     Indication: ATRIAL FIBRILLATION
     Route: 048
     Dates: end: 201405

REACTIONS (4)
  - Haemorrhage intracranial [Unknown]
  - Ventricular tachycardia [Fatal]
  - Septic shock [Fatal]
  - Hyperglycaemic hyperosmolar nonketotic syndrome [Fatal]

NARRATIVE: CASE EVENT DATE: 201405
